FAERS Safety Report 16967043 (Version 1)
Quarter: 2019Q4

REPORT INFORMATION
  Report Type: Spontaneous
  Country: US (occurrence: US)
  Receive Date: 20190910
  Receipt Date: 20190910
  Transmission Date: 20200122
  Serious: Yes (Death)
  Sender: FDA-Public Use
  Company Number: None

PATIENT
  Age: 73 Year
  Sex: Male

DRUGS (27)
  1. INCRUSE ELPT INH [Concomitant]
  2. BROVANA NEB [Concomitant]
  3. ELIQUIS [Concomitant]
     Active Substance: APIXABAN
  4. METOPROL TAR [Concomitant]
  5. XOPENEX AER [Concomitant]
  6. FERROUS SULF TAB 325MG [Concomitant]
  7. PRALUENT INJ [Concomitant]
  8. ALBUTEROL NEB [Concomitant]
     Active Substance: ALBUTEROL
  9. REPATHA INJ [Concomitant]
  10. DILTIAZEM CAP [Concomitant]
  11. INCRUSE ELPT INH [Concomitant]
  12. CALCITRIOL CAP 0.25MCG [Concomitant]
     Active Substance: CALCITRIOL
  13. AVODART CAP [Concomitant]
  14. FLUTICASONE SPR [Concomitant]
  15. ALLEGRA ALRG TAB [Concomitant]
  16. VITAMIN D CAP 50000UNT [Concomitant]
  17. INCRUSE ELPT INH [Concomitant]
  18. PREDNISONE PAK [Concomitant]
  19. EZETIMEE TAB [Concomitant]
  20. NO DRUG NAME [Concomitant]
  21. REPATHA [Suspect]
     Active Substance: EVOLOCUMAB
     Indication: HYPERCHOLESTEROLAEMIA
     Dosage: ?          OTHER FREQUENCY:EVERY 14 DAYS;?
     Route: 058
     Dates: start: 20190626
  22. BUDESONIDE SUS [Concomitant]
  23. DUTASTERIDE CAP [Concomitant]
  24. AZELASTINE SPR 0.1% [Concomitant]
  25. LOSARTAN POT TAB 25MG [Concomitant]
  26. CALCITROL CAP [Concomitant]
  27. BROVANA [Concomitant]
     Active Substance: ARFORMOTEROL TARTRATE

REACTIONS (1)
  - Death [None]
